FAERS Safety Report 8444429-3 (Version None)
Quarter: 2012Q2

REPORT INFORMATION
  Report Type: 
  Country: None (occurrence: None)
  Receive Date: 20120611
  Receipt Date: 20120531
  Transmission Date: 20120825
  Serious: Yes (Hospitalization)
  Sender: FDA-Public Use
  Company Number: 2012SP029855

PATIENT
  Age: 44 Year
  Sex: Female

DRUGS (2)
  1. IMPLANON [Suspect]
     Indication: PRODUCT USED FOR UNKNOWN INDICATION
     Dosage: 1 DF 1 DF
     Dates: start: 20090310
  2. IMPLANON [Suspect]
     Indication: PRODUCT USED FOR UNKNOWN INDICATION
     Dosage: 1 DF 1 DF
     Dates: start: 20110101

REACTIONS (3)
  - GUILLAIN-BARRE SYNDROME [None]
  - INCORRECT DRUG ADMINISTRATION DURATION [None]
  - IMPLANT SITE PAIN [None]
